FAERS Safety Report 26048662 (Version 2)
Quarter: 2025Q4

REPORT INFORMATION
  Report Type: Report from Study
  Country: US (occurrence: US)
  Receive Date: 20251114
  Receipt Date: 20251119
  Transmission Date: 20260117
  Serious: Yes (Other)
  Sender: ABBVIE
  Company Number: US-ABBVIE-6543088

PATIENT
  Age: 66 Year
  Sex: Female

DRUGS (1)
  1. SKYRIZI [Suspect]
     Active Substance: RISANKIZUMAB-RZAA
     Indication: Psoriatic arthropathy
     Route: 058
     Dates: start: 20250418

REACTIONS (6)
  - Myocardial infarction [Unknown]
  - Injection site bruising [Recovering/Resolving]
  - Nasopharyngitis [Recovering/Resolving]
  - Arthralgia [Recovered/Resolved]
  - Contusion [Recovering/Resolving]
  - Fatigue [Unknown]

NARRATIVE: CASE EVENT DATE: 20250101
